FAERS Safety Report 8816799 (Version 1)
Quarter: 2012Q4

REPORT INFORMATION
  Report Type: Spontaneous
  Country: US (occurrence: None)
  Receive Date: 20121001
  Receipt Date: 20121001
  Transmission Date: 20130627
  Serious: Yes (Death, Hospitalization)
  Sender: FDA-Public Use
  Company Number: 2012MA011640

PATIENT
  Age: 49 Year
  Sex: Female

DRUGS (8)
  1. GEMCITABINE HYDROCHLORIDE [Suspect]
     Dates: start: 20111212
  2. CISPLATIN [Suspect]
     Dates: start: 20111212
  3. DALTEPARIN [Concomitant]
     Dates: start: 20111212
  4. PRACETAMOL [Concomitant]
  5. FERROUS SULFATE [Concomitant]
  6. DOMPERIDONE [Concomitant]
  7. SYMBICORT [Concomitant]
  8. SEREVENT DISKUS [Concomitant]

REACTIONS (7)
  - Haemoptysis [None]
  - Cardiac arrest [None]
  - Anaemia [None]
  - Thrombocytopenia [None]
  - Malaise [None]
  - Oropharyngeal pain [None]
  - Cough [None]
